FAERS Safety Report 13609023 (Version 3)
Quarter: 2017Q4

REPORT INFORMATION
  Report Type: Spontaneous
  Country: US (occurrence: US)
  Receive Date: 20170602
  Receipt Date: 20171004
  Transmission Date: 20180320
  Serious: Yes (Hospitalization, Other)
  Sender: FDA-Public Use
  Company Number: US-SMITH AND NEPHEW, INC-2017SMT00335

PATIENT
  Age: 66 Year
  Sex: Male
  Weight: 104.31 kg

DRUGS (14)
  1. COUMADIN [Concomitant]
     Active Substance: WARFARIN SODIUM
     Dosage: 5 MG, 5X/WEEK
  2. AUGMENTIN [Concomitant]
     Active Substance: AMOXICILLIN\CLAVULANATE POTASSIUM
     Dosage: 875 MG, 2X/DAY
  3. MULTIVITAMIN [Concomitant]
     Active Substance: VITAMINS
  4. SIMVASTATIN. [Concomitant]
     Active Substance: SIMVASTATIN
     Dosage: 40 MG, 1X/DAY
  5. AMIODARONE [Concomitant]
     Active Substance: AMIODARONE
     Dosage: 100 MG, 1X/DAY
  6. REGRANEX [Suspect]
     Active Substance: BECAPLERMIN
     Indication: ULCER
     Dosage: UNK UNK, 1X/DAY FOR 12 HOURS ON AND 12 HOURS OFF
     Route: 061
     Dates: start: 20170410, end: 201704
  7. NOVOLIN [Concomitant]
     Active Substance: INSULIN HUMAN
     Dosage: USED ON A SLIDING SCALE
  8. COUMADIN [Concomitant]
     Active Substance: WARFARIN SODIUM
     Dosage: 4 MG, 2X/WEEK
  9. BAYER ASPIRIN [Concomitant]
     Active Substance: ASPIRIN
     Dosage: 81 MG, 1X/DAY
     Dates: end: 201705
  10. CARVEDILOL. [Concomitant]
     Active Substance: CARVEDILOL
     Dosage: 6.25 MG, 2X/DAY
  11. FUROSEMIDE. [Concomitant]
     Active Substance: FUROSEMIDE
     Dosage: 20 MG, 2X/DAY
  12. IRON [Concomitant]
     Active Substance: IRON
  13. METFORMIN [Concomitant]
     Active Substance: METFORMIN HYDROCHLORIDE
     Dosage: 1000 MG, 2X/DAY
  14. LANTUS [Concomitant]
     Active Substance: INSULIN GLARGINE
     Dosage: 100 U, 2X/DAY

REACTIONS (7)
  - Wound complication [Not Recovered/Not Resolved]
  - Amputation [Recovered/Resolved with Sequelae]
  - Impaired healing [Not Recovered/Not Resolved]
  - Osteomyelitis [Not Recovered/Not Resolved]
  - Wound decomposition [Not Recovered/Not Resolved]
  - Cellulitis [Unknown]
  - Application site discolouration [Recovering/Resolving]

NARRATIVE: CASE EVENT DATE: 2017
